FAERS Safety Report 8403307-6 (Version None)
Quarter: 2012Q2

REPORT INFORMATION
  Report Type: 
  Country: None (occurrence: None)
  Receive Date: 20120601
  Receipt Date: 20120206
  Transmission Date: 20120825
  Serious: Yes (Other)
  Sender: FDA-Public Use
  Company Number: JP-BRISTOL-MYERS SQUIBB COMPANY-16405391

PATIENT

DRUGS (1)
  1. ABILIFY [Suspect]
     Route: 048
     Dates: end: 20120201

REACTIONS (3)
  - THROMBOSIS [None]
  - DECREASED APPETITE [None]
  - DYSARTHRIA [None]
